FAERS Safety Report 21874580 (Version 4)
Quarter: 2023Q1

REPORT INFORMATION
  Report Type: Spontaneous
  Country: LT (occurrence: None)
  Receive Date: 20230117
  Receipt Date: 20230227
  Transmission Date: 20230418
  Serious: Yes (Life-Threatening, Hospitalization, Other)
  Sender: FDA-Public Use
  Company Number: 2022A418097

PATIENT
  Age: 47 Year
  Sex: Female

DRUGS (24)
  1. QUETIAPINE [Suspect]
     Active Substance: QUETIAPINE
     Indication: Schizophrenia
     Dosage: 800 MG/DAY
     Route: 048
  2. DIAZEPAM [Suspect]
     Active Substance: DIAZEPAM
     Indication: Anxiety
     Dosage: UP TO 20 MG/DAY
     Route: 065
  3. DIAZEPAM [Suspect]
     Active Substance: DIAZEPAM
     Indication: Agitation
     Dosage: UP TO 20 MG/DAY
     Route: 065
  4. DIAZEPAM [Suspect]
     Active Substance: DIAZEPAM
     Indication: Seizure
     Dosage: UP TO 20 MG/DAY
     Route: 065
  5. CLORAZEPATE DIPOTASSIUM [Suspect]
     Active Substance: CLORAZEPATE DIPOTASSIUM
     Indication: Schizophrenia
     Dosage: UP TO 20 MG/DAY
     Route: 065
  6. CLORAZEPATE DIPOTASSIUM [Suspect]
     Active Substance: CLORAZEPATE DIPOTASSIUM
     Indication: Generalised anxiety disorder
     Dosage: UP TO 20 MG/DAY
     Route: 065
  7. CLORAZEPATE DIPOTASSIUM [Suspect]
     Active Substance: CLORAZEPATE DIPOTASSIUM
     Indication: Mania
     Dosage: UP TO 20 MG/DAY
     Route: 065
  8. CLORAZEPATE DIPOTASSIUM [Suspect]
     Active Substance: CLORAZEPATE DIPOTASSIUM
     Indication: Schizophrenia
     Dosage: UP TO 20 MG/DAY
     Route: 065
  9. CLORAZEPATE DIPOTASSIUM [Suspect]
     Active Substance: CLORAZEPATE DIPOTASSIUM
     Indication: Schizophrenia
     Dosage: UP TO 20 MG/DAY
     Route: 065
  10. CLORAZEPATE DIPOTASSIUM [Suspect]
     Active Substance: CLORAZEPATE DIPOTASSIUM
     Indication: Generalised anxiety disorder
     Dosage: UP TO 20 MG/DAY
     Route: 065
  11. CLORAZEPATE DIPOTASSIUM [Suspect]
     Active Substance: CLORAZEPATE DIPOTASSIUM
     Indication: Mania
     Dosage: UP TO 20 MG/DAY
     Route: 065
  12. CLORAZEPATE DIPOTASSIUM [Suspect]
     Active Substance: CLORAZEPATE DIPOTASSIUM
     Indication: Schizophrenia
     Dosage: UP TO 20 MG/DAY
     Route: 065
  13. CLORAZEPATE DIPOTASSIUM [Suspect]
     Active Substance: CLORAZEPATE DIPOTASSIUM
     Indication: Schizophrenia
     Dosage: UP TO 20 MG/DAY
     Route: 065
  14. CLORAZEPATE DIPOTASSIUM [Suspect]
     Active Substance: CLORAZEPATE DIPOTASSIUM
     Indication: Generalised anxiety disorder
     Dosage: UP TO 20 MG/DAY
     Route: 065
  15. CLORAZEPATE DIPOTASSIUM [Suspect]
     Active Substance: CLORAZEPATE DIPOTASSIUM
     Indication: Mania
     Dosage: UP TO 20 MG/DAY
     Route: 065
  16. CLORAZEPATE DIPOTASSIUM [Suspect]
     Active Substance: CLORAZEPATE DIPOTASSIUM
     Indication: Schizophrenia
     Dosage: UP TO 20 MG/DAY
     Route: 065
  17. CLOZAPINE [Suspect]
     Active Substance: CLOZAPINE
     Indication: Schizophrenia
     Route: 065
  18. HALOPERIDOL [Suspect]
     Active Substance: HALOPERIDOL
     Indication: Psychomotor hyperactivity
  19. HALOPERIDOL [Suspect]
     Active Substance: HALOPERIDOL
     Indication: Delirium
  20. AMITRIPTYLINE [Suspect]
     Active Substance: AMITRIPTYLINE
     Indication: Depression
     Route: 065
  21. AMITRIPTYLINE [Suspect]
     Active Substance: AMITRIPTYLINE
     Indication: Schizophrenia
     Route: 065
  22. AMITRIPTYLINE [Suspect]
     Active Substance: AMITRIPTYLINE
     Indication: Depression
     Route: 065
  23. AMITRIPTYLINE [Suspect]
     Active Substance: AMITRIPTYLINE
     Indication: Schizophrenia
     Route: 065
  24. DEXAMETHASONE [Suspect]
     Active Substance: DEXAMETHASONE
     Route: 065

REACTIONS (9)
  - Hyponatraemia [Unknown]
  - Inappropriate antidiuretic hormone secretion [Unknown]
  - Cortisol increased [Unknown]
  - Polydipsia [Recovering/Resolving]
  - Drug ineffective [Recovering/Resolving]
  - Prescribed overdose [Unknown]
  - Disturbance in attention [Unknown]
  - Delusion [Unknown]
  - Abulia [Unknown]
